FAERS Safety Report 5781753-7 (Version None)
Quarter: 2008Q2

REPORT INFORMATION
  Report Type: 
  Country: None (occurrence: None)
  Receive Date: 20080623
  Receipt Date: 20070913
  Transmission Date: 20081010
  Serious: No
  Sender: FDA-Public Use
  Company Number: US-ASTRAZENECA-2007UW21713

PATIENT
  Age: 42 Year
  Sex: Female
  Weight: 72.6 kg

DRUGS (4)
  1. RHINOCORT [Suspect]
     Indication: NASAL INFLAMMATION
     Dosage: 32 UG, ONE SPRAY EACH NOSTRIL ONCE DAILY
     Route: 045
     Dates: start: 20070908
  2. MUCINEX D [Suspect]
     Dates: start: 20070908
  3. CYMBALTA [Concomitant]
  4. GEODON [Concomitant]

REACTIONS (1)
  - DIARRHOEA [None]
